FAERS Safety Report 5086139-9 (Version None)
Quarter: 2006Q3

REPORT INFORMATION
  Report Type: 
  Country: None (occurrence: None)
  Receive Date: 20060818
  Receipt Date: 20060807
  Transmission Date: 20061208
  Serious: Yes (Death, Other)
  Sender: FDA-Public Use
  Company Number: 2006090533

PATIENT
  Age: 55 Year
  Sex: Male

DRUGS (3)
  1. ZYVOX [Suspect]
     Indication: STAPHYLOCOCCAL SEPSIS
     Dosage: 1200 MG, ORAL
     Route: 048
     Dates: start: 20060706
  2. LOXONIN                 (LOXOPROFEN SODIUM) [Concomitant]
  3. OXYCONTIN [Concomitant]

REACTIONS (3)
  - METASTASES TO LUNG [None]
  - PLATELET COUNT DECREASED [None]
  - RESPIRATORY FAILURE [None]
